FAERS Safety Report 6431759-X (Version None)
Quarter: 2009Q4

REPORT INFORMATION
  Report Type: 
  Country: None (occurrence: None)
  Receive Date: 20091104
  Receipt Date: 20091026
  Transmission Date: 20100525
  Serious: Yes (Death, Hospitalization)
  Sender: FDA-Public Use
  Company Number: 2009-04457

PATIENT
  Age: 68 Year
  Sex: Female

DRUGS (5)
  1. VELCADE [Suspect]
     Indication: MULTIPLE MYELOMA
     Dosage: 1.3 MG/M2, INTRAVENOUS
     Route: 042
     Dates: start: 20090624, end: 20090916
  2. ALLOPURINOL [Suspect]
     Indication: BLOOD URIC ACID INCREASED
     Dosage: 300 MG,
     Dates: start: 20090814, end: 20091015
  3. BACTRIM [Concomitant]
  4. NEXIUM [Concomitant]
  5. DEXAMETHASONE [Concomitant]

REACTIONS (5)
  - GENERAL PHYSICAL HEALTH DETERIORATION [None]
  - MALIGNANT NEOPLASM PROGRESSION [None]
  - MULTI-ORGAN FAILURE [None]
  - MULTIPLE MYELOMA [None]
  - TOXIC EPIDERMAL NECROLYSIS [None]
